FAERS Safety Report 6372866-X (Version None)
Quarter: 2009Q3

REPORT INFORMATION
  Report Type: 
  Country: None (occurrence: None)
  Receive Date: 20090924
  Receipt Date: 20081119
  Transmission Date: 20100115
  Serious: No
  Sender: FDA-Public Use
  Company Number: US-ASTRAZENECA-2008UW26014

PATIENT
  Sex: Male

DRUGS (3)
  1. SEROQUEL [Suspect]
     Dosage: 200 MG
     Route: 048
  2. SEROQUEL [Suspect]
     Dosage: 150 MG
     Route: 048
  3. KLONOPIN [Concomitant]

REACTIONS (1)
  - STARING [None]
